FAERS Safety Report 6511504-X (Version None)
Quarter: 2009Q4

REPORT INFORMATION
  Report Type: 
  Country: None (occurrence: None)
  Receive Date: 20091222
  Receipt Date: 20090414
  Transmission Date: 20100525
  Serious: No
  Sender: FDA-Public Use
  Company Number: US-ASTRAZENECA-2009UW09405

PATIENT
  Sex: Female

DRUGS (5)
  1. CRESTOR [Suspect]
     Indication: BLOOD CHOLESTEROL INCREASED
     Route: 048
     Dates: end: 20090406
  2. COUMADIN [Concomitant]
  3. ZOCOR [Concomitant]
  4. LIPITOR [Concomitant]
  5. BETA BLOCKER [Concomitant]

REACTIONS (3)
  - BACK PAIN [None]
  - BLOOD CHOLESTEROL ABNORMAL [None]
  - DIARRHOEA [None]
